FAERS Safety Report 21793650 (Version 1)
Quarter: 2022Q4

REPORT INFORMATION
  Report Type: Spontaneous
  Country: JP (occurrence: JP)
  Receive Date: 20221229
  Receipt Date: 20221229
  Transmission Date: 20230113
  Serious: Yes (Other)
  Sender: FDA-Public Use
  Company Number: JP-Accord-293487

PATIENT
  Age: 69 Year
  Sex: Male

DRUGS (2)
  1. TEMOZOLOMIDE [Suspect]
     Active Substance: TEMOZOLOMIDE
     Indication: Glioblastoma
  2. TEMOZOLOMIDE [Suspect]
     Active Substance: TEMOZOLOMIDE
     Indication: Glioblastoma
     Dosage: 150-200 MG/M2/DAY FOR 5 DAYS DURING THE 28-DAY CYCLE
     Route: 048

REACTIONS (2)
  - Lymphopenia [Unknown]
  - Central nervous system lymphoma [Unknown]
